FAERS Safety Report 14849254 (Version 1)
Quarter: 2018Q2

REPORT INFORMATION
  Report Type: Other
  Country: US (occurrence: US)
  Receive Date: 20180504
  Receipt Date: 20180504
  Transmission Date: 20180711
  Serious: Yes (Hospitalization)
  Sender: FDA-Public Use
  Company Number: US-DOLLAR TREE-2047234

PATIENT
  Age: 12 Year
  Sex: Male
  Weight: 27.27 kg

DRUGS (1)
  1. TUSSIN DM COUGH AND CHEST CONGESTION [Suspect]
     Active Substance: DEXTROMETHORPHAN HYDROBROMIDE\GUAIFENESIN
     Route: 048
     Dates: start: 20180419, end: 20180419

REACTIONS (4)
  - Dizziness [Recovered/Resolved]
  - Epistaxis [Recovered/Resolved]
  - Pain [Recovered/Resolved]
  - Eye haemorrhage [Recovered/Resolved]

NARRATIVE: CASE EVENT DATE: 20180419
